FAERS Safety Report 14074352 (Version 5)
Quarter: 2022Q2

REPORT INFORMATION
  Report Type: Report from Study
  Country: US (occurrence: US)
  Receive Date: 20171010
  Receipt Date: 20220422
  Transmission Date: 20220721
  Serious: Yes (Hospitalization)
  Sender: FDA-Public Use
  Company Number: US-ABBVIE-17P-163-2125479-00

PATIENT
  Age: 55 Year
  Sex: Female

DRUGS (27)
  1. VENETOCLAX [Suspect]
     Active Substance: VENETOCLAX
     Indication: Diffuse large B-cell lymphoma
     Dosage: DAYS 3-12 IN CYCLE 1, AND DAYS 1-10 WITH ALL SUBSEQUENT CYCLES EXCEPT DOSE LEVEL -1
     Route: 048
  2. VENETOCLAX [Suspect]
     Active Substance: VENETOCLAX
     Dosage: FOR 10 DAYS
     Route: 048
     Dates: start: 20170609
  3. RITUXIMAB [Concomitant]
     Active Substance: RITUXIMAB
     Indication: Diffuse large B-cell lymphoma
     Dosage: INFUSION, SOLUTION. ON DAY 1 OF EACH CYCLE OF DA-EPOCH-R
     Route: 042
  4. RITUXIMAB [Concomitant]
     Active Substance: RITUXIMAB
     Dosage: CYCLE 3 DAY1
     Route: 042
     Dates: start: 20170609
  5. ETOPOSIDE PHOSPHATE(ETOPOSIDE PHOSPHATE) [Concomitant]
     Indication: Diffuse large B-cell lymphoma
     Route: 042
  6. ETOPOSIDE PHOSPHATE(ETOPOSIDE PHOSPHATE) [Concomitant]
     Dosage: CYCLE 3 DAY1
     Route: 042
     Dates: start: 20170609
  7. CYCLOPHOSPHAMIDE [Concomitant]
     Active Substance: CYCLOPHOSPHAMIDE
     Indication: Diffuse large B-cell lymphoma
     Route: 042
  8. CYCLOPHOSPHAMIDE [Concomitant]
     Active Substance: CYCLOPHOSPHAMIDE
     Dosage: CYCLE 3 DAY1
     Dates: start: 20170609
  9. PREDNISONE(PREDNISONE) [Concomitant]
     Indication: Diffuse large B-cell lymphoma
     Route: 048
  10. PREDNISONE(PREDNISONE) [Concomitant]
     Dosage: CYCLE 3 DAY1
     Dates: start: 20170609
  11. DOXORUBICIN HYDROCHLORIDE(DOXORUBICIN HYDROCHLORIDE) [Concomitant]
     Indication: Diffuse large B-cell lymphoma
     Route: 042
  12. DOXORUBICIN HYDROCHLORIDE(DOXORUBICIN HYDROCHLORIDE) [Concomitant]
     Dosage: CYCLE 3 DAY1
     Route: 042
     Dates: start: 20170609
  13. VINCRISTINE SULFATE(VINCRISTINE SULFATE) [Concomitant]
     Indication: Diffuse large B-cell lymphoma
     Route: 042
  14. VINCRISTINE SULFATE(VINCRISTINE SULFATE) [Concomitant]
     Dosage: CYCLE 3 DAY1
     Route: 042
     Dates: start: 20170609
  15. FLUOXETINE HYDROCHLORIDE [Concomitant]
     Active Substance: FLUOXETINE HYDROCHLORIDE
     Indication: Product used for unknown indication
     Route: 048
  16. ACETAMINOPHEN\OXYCODONE HYDROCHLORIDE [Concomitant]
     Active Substance: ACETAMINOPHEN\OXYCODONE HYDROCHLORIDE
     Indication: Pain
     Dosage: 5MG-325MG
     Route: 048
  17. PROTONIX [Concomitant]
     Active Substance: PANTOPRAZOLE SODIUM
     Indication: Product used for unknown indication
     Route: 048
  18. COMPAZINE [Concomitant]
     Active Substance: PROCHLORPERAZINE MALEATE
     Indication: Vomiting
     Route: 048
  19. COMPAZINE [Concomitant]
     Active Substance: PROCHLORPERAZINE MALEATE
     Indication: Nausea
  20. VALTREX [Concomitant]
     Active Substance: VALACYCLOVIR HYDROCHLORIDE
     Indication: Prophylaxis
     Route: 048
  21. BIOTIN [Concomitant]
     Active Substance: BIOTIN
     Indication: Product used for unknown indication
     Route: 048
  22. PREVIDENT [Concomitant]
     Active Substance: SODIUM FLUORIDE
     Indication: Hyperaesthesia teeth
     Dosage: 1,1%-5% PASTE
  23. BACTRIM [Concomitant]
     Active Substance: SULFAMETHOXAZOLE\TRIMETHOPRIM
     Indication: Product used for unknown indication
     Dosage: 400-80MG
     Route: 048
  24. NEULASTA [Concomitant]
     Active Substance: PEGFILGRASTIM
     Indication: Product used for unknown indication
  25. LEVOPHED [Concomitant]
     Active Substance: NOREPINEPHRINE BITARTRATE
     Indication: Product used for unknown indication
  26. CIPRO [Concomitant]
     Active Substance: CIPROFLOXACIN HYDROCHLORIDE
     Indication: Product used for unknown indication
  27. CARDIZEM [Concomitant]
     Active Substance: DILTIAZEM HYDROCHLORIDE
     Indication: Atrial fibrillation

REACTIONS (6)
  - Dehydration [Recovered/Resolved]
  - Pancytopenia [Recovered/Resolved]
  - Pneumonia [Recovered/Resolved]
  - Septic shock [Recovered/Resolved]
  - Neutropenia [Not Recovered/Not Resolved]
  - Neutrophil count decreased [Recovered/Resolved]

NARRATIVE: CASE EVENT DATE: 20170620
